FAERS Safety Report 11421056 (Version 1)
Quarter: 2015Q3

REPORT INFORMATION
  Report Type: Spontaneous
  Country: US (occurrence: US)
  Receive Date: 20150826
  Receipt Date: 20150826
  Transmission Date: 20151125
  Serious: No
  Sender: FDA-Public Use
  Company Number: US-PFIZER INC-2015284887

PATIENT
  Age: 59 Year
  Sex: Female
  Weight: 88 kg

DRUGS (3)
  1. CADUET [Concomitant]
     Active Substance: AMLODIPINE BESYLATE\ATORVASTATIN CALCIUM
     Dosage: [AMLODIPINE 10/ATORVASTATIN 80] 1 DF, A DAY
  2. EFFEXOR XR [Suspect]
     Active Substance: VENLAFAXINE HYDROCHLORIDE
     Indication: DEPRESSION
     Dosage: 375 MG, 1X/DAY
  3. CELEBREX [Concomitant]
     Active Substance: CELECOXIB
     Dosage: 200 MG, 2X/DAY

REACTIONS (6)
  - Depression [Unknown]
  - Tremor [Unknown]
  - Hyperhidrosis [Unknown]
  - Crying [Unknown]
  - Drug withdrawal syndrome [Unknown]
  - Overdose [Unknown]

NARRATIVE: CASE EVENT DATE: 201108
